FAERS Safety Report 7336243-7 (Version None)
Quarter: 2011Q1

REPORT INFORMATION
  Report Type: 
  Country: None (occurrence: None)
  Receive Date: 20110307
  Receipt Date: 20110120
  Transmission Date: 20110831
  Serious: No
  Sender: FDA-Public Use
  Company Number: IT-B.I. PHARMACEUTICALS,INC./RIDGEFIELD-2011-BP-06238YA

PATIENT
  Sex: Male

DRUGS (1)
  1. OMNIC [Suspect]

REACTIONS (3)
  - PAINFUL ERECTION [None]
  - ERECTION INCREASED [None]
  - ERECTILE DYSFUNCTION [None]
